FAERS Safety Report 5882123-3 (Version None)
Quarter: 2008Q3

REPORT INFORMATION
  Report Type: 
  Country: None (occurrence: None)
  Receive Date: 20080912
  Receipt Date: 20080725
  Transmission Date: 20090109
  Serious: No
  Sender: FDA-Public Use
  Company Number: US-ABBOTT-08P-163-0465626-00

PATIENT
  Sex: Female
  Weight: 72.186 kg

DRUGS (7)
  1. HUMIRA [Suspect]
     Indication: CROHN'S DISEASE
     Dates: start: 20080716
  2. LIALDA [Suspect]
     Indication: CROHN'S DISEASE
     Route: 048
     Dates: start: 20080601
  3. ESTRADIOL [Concomitant]
     Indication: HORMONE REPLACEMENT THERAPY
  4. BISOPROLOL FUMARATE [Concomitant]
     Indication: BLOOD PRESSURE
     Route: 048
  5. TRIAMTERENE [Concomitant]
     Indication: BLOOD PRESSURE
     Dosage: 1/2 TABLET, 1 IN 1 D
     Route: 048
  6. HYDROCODONE BITARTRATE [Concomitant]
     Indication: PAIN
     Route: 048
  7. TEMAZEPAM [Concomitant]
     Indication: INSOMNIA
     Route: 048

REACTIONS (7)
  - ABDOMINAL DISTENSION [None]
  - ACCIDENTAL EXPOSURE [None]
  - DIARRHOEA [None]
  - GASTRIC DISORDER [None]
  - HAEMORRHAGE [None]
  - HYPERHIDROSIS [None]
  - PAIN [None]
